FAERS Safety Report 4939009-8 (Version None)
Quarter: 2006Q1

REPORT INFORMATION
  Report Type: 
  Country: None (occurrence: None)
  Receive Date: 20060309
  Receipt Date: 20060227
  Transmission Date: 20060701
  Serious: Yes (Hospitalization)
  Sender: FDA-Public Use
  Company Number: US-MERCK-0603USA00014

PATIENT
  Age: 66 Year
  Sex: Female
  Weight: 76 kg

DRUGS (1)
  1. VIOXX [Suspect]
     Indication: ARTHRITIS
     Route: 048
     Dates: start: 20000401, end: 20010901

REACTIONS (11)
  - ARTHROPATHY [None]
  - BACK DISORDER [None]
  - BACK PAIN [None]
  - CARDIAC DISORDER [None]
  - CHEST PAIN [None]
  - CORNEAL DYSTROPHY [None]
  - DRY EYE [None]
  - DYSPNOEA [None]
  - HYPERTENSION [None]
  - PHARYNGEAL OEDEMA [None]
  - VISION BLURRED [None]
